FAERS Safety Report 9443036 (Version 4)
Quarter: 2013Q4

REPORT INFORMATION
  Report Type: Spontaneous
  Country: IE (occurrence: IE)
  Receive Date: 20130806
  Receipt Date: 20131030
  Transmission Date: 20140711
  Serious: Yes (Life-Threatening, Hospitalization)
  Sender: FDA-Public Use
  Company Number: PHFR2013IE004350

PATIENT
  Age: 39 Year
  Sex: Male

DRUGS (7)
  1. CLOZARIL [Suspect]
     Indication: SCHIZOPHRENIA
     Dosage: UNK
     Route: 048
     Dates: start: 19990118
  2. CLOZARIL [Suspect]
     Dosage: 200 MG, DAILY
     Route: 048
     Dates: start: 20041011, end: 20130708
  3. PARACETAMOL [Suspect]
     Dosage: UNK
  4. PARACETAMOL [Suspect]
     Dosage: UNK (TOOK OVERDOSE OF 100 TABLETS)
     Dates: start: 20130708
  5. TACROLIMUS [Concomitant]
     Dosage: UNK
  6. VALGANCICLOVIR [Concomitant]
     Dosage: UNK
  7. CITALOPRAM [Concomitant]
     Dosage: 40 MG, DAILY
     Route: 048
     Dates: start: 20041011

REACTIONS (2)
  - Overdose [Unknown]
  - Hepatic failure [Unknown]
